FAERS Safety Report 10203533 (Version 1)
Quarter: 2014Q2

REPORT INFORMATION
  Report Type: Report from Study
  Country: TW (occurrence: TW)
  Receive Date: 20140529
  Receipt Date: 20140529
  Transmission Date: 20141212
  Serious: Yes (Hospitalization)
  Sender: FDA-Public Use
  Company Number: TW-SA-2014SA069482

PATIENT
  Age: 4 Year
  Sex: Male

DRUGS (13)
  1. MYOZYME [Suspect]
     Indication: GLYCOGEN STORAGE DISEASE TYPE II
     Route: 042
  2. CEFAZOLIN SODIUM [Concomitant]
  3. DEXTROSE [Concomitant]
  4. ACETAMINOPHEN [Concomitant]
  5. DICLOFENAC SODIUM [Concomitant]
  6. METOCLOPRAMIDE HYDROCHLORIDE [Concomitant]
  7. FAMOTIDINE [Concomitant]
  8. ACETYLCYSTEINE [Concomitant]
  9. AMBROXOL HYDROCHLORIDE [Concomitant]
  10. PSEUDOEPHEDRINE HYDROCHLORIDE [Concomitant]
  11. TRIPROLIDINE HYDROCHLORIDE [Concomitant]
  12. TERBUTALINE SULFATE [Concomitant]
  13. DIPHENHYDRAMINE [Concomitant]

REACTIONS (4)
  - Supraventricular tachycardia [Recovered/Resolved]
  - Tachycardia [Recovered/Resolved]
  - Femur fracture [Recovered/Resolved]
  - Device malfunction [Recovered/Resolved]
